FAERS Safety Report 4735652-X (Version None)
Quarter: 2005Q3

REPORT INFORMATION
  Report Type: 
  Country: None (occurrence: None)
  Receive Date: 20050805
  Receipt Date: 20050803
  Transmission Date: 20060218
  Serious: Yes (Hospitalization)
  Sender: FDA-Public Use
  Company Number: FR-GLAXOSMITHKLINE-B0389692A

PATIENT
  Age: 27 Year
  Sex: Female

DRUGS (1)
  1. IMIJECT [Suspect]
     Indication: FACIAL PAIN
     Route: 058
     Dates: start: 20050427, end: 20050428

REACTIONS (1)
  - DIPLOPIA [None]
